FAERS Safety Report 9612141 (Version 2)
Quarter: 2014Q1

REPORT INFORMATION
  Report Type: Spontaneous
  Country: US (occurrence: US)
  Receive Date: 20131010
  Receipt Date: 20140113
  Transmission Date: 20141002
  Serious: No
  Sender: FDA-Public Use
  Company Number: US-ASTELLAS-2013US009871

PATIENT
  Age: 90 Year
  Sex: Male

DRUGS (2)
  1. MYRBETRIQ [Suspect]
     Indication: PRODUCT USED FOR UNKNOWN INDICATION
     Dosage: 25 MG, UID/QD
     Route: 048
     Dates: start: 20130908
  2. MYRBETRIQ [Suspect]
     Dosage: 50 MG, UNK
     Route: 048

REACTIONS (4)
  - Drug ineffective [Unknown]
  - Confusional state [Unknown]
  - Memory impairment [Unknown]
  - Nocturia [Unknown]
